FAERS Safety Report 5160262-2 (Version None)
Quarter: 2006Q4

REPORT INFORMATION
  Report Type: 
  Country: None (occurrence: None)
  Receive Date: 20061129
  Receipt Date: 20061128
  Transmission Date: 20070319
  Serious: Yes (Life-Threatening, Other)
  Sender: FDA-Public Use
  Company Number: US-GLAXOSMITHKLINE-A0629022A

PATIENT
  Age: 30 Year
  Sex: Female

DRUGS (6)
  1. EPZICOM [Suspect]
     Indication: HIV INFECTION
     Dosage: 1TAB PER DAY
     Route: 048
     Dates: start: 20061110, end: 20061122
  2. SUSTIVA [Suspect]
     Indication: HIV INFECTION
     Dosage: 600MG PER DAY
     Route: 048
     Dates: start: 20061110, end: 20061122
  3. LEVOTHYROXINE SODIUM [Concomitant]
     Dates: start: 20030715
  4. ZOLOFT [Concomitant]
     Dates: start: 20030715
  5. MIDRIN [Concomitant]
     Dates: start: 20030715
  6. BACTRIM DS [Concomitant]
     Indication: URINARY TRACT INFECTION
     Dates: start: 20061114, end: 20061117

REACTIONS (8)
  - DRUG HYPERSENSITIVITY [None]
  - DYSPHAGIA [None]
  - DYSPNOEA [None]
  - ERYTHEMA [None]
  - PRURITUS [None]
  - RASH MACULO-PAPULAR [None]
  - SKIN LESION [None]
  - URTICARIA [None]
